FAERS Safety Report 6171553-0 (Version None)
Quarter: 2009Q2

REPORT INFORMATION
  Report Type: 
  Country: None (occurrence: None)
  Receive Date: 20090429
  Receipt Date: 20090424
  Transmission Date: 20091009
  Serious: Yes (Other)
  Sender: FDA-Public Use
  Company Number: US-PFIZER INC-2009151586

PATIENT
  Age: 61 Year
  Sex: Female
  Weight: 96.145 kg

DRUGS (8)
  1. LIPITOR [Suspect]
     Indication: HYPERLIPIDAEMIA
     Dosage: 20 MG, UNK
     Dates: start: 20050409, end: 20080714
  2. CRESTOR [Suspect]
     Indication: HYPERLIPIDAEMIA
     Dosage: 2.5 MG, UNK
     Dates: start: 20080911, end: 20081028
  3. PRAVACHOL [Suspect]
     Indication: HYPERLIPIDAEMIA
     Dosage: 20 MG, UNK
     Dates: start: 20081029, end: 20081217
  4. ATENOLOL [Concomitant]
     Indication: ARRHYTHMIA
     Dosage: UNK
  5. LEVOXYL [Concomitant]
  6. CLARITIN [Concomitant]
  7. ESTER-C [Concomitant]
  8. ASPIRIN [Concomitant]

REACTIONS (1)
  - SYSTEMIC LUPUS ERYTHEMATOSUS [None]
